FAERS Safety Report 21686904 (Version 1)
Quarter: 2022Q4

REPORT INFORMATION
  Report Type: Spontaneous
  Country: CA (occurrence: None)
  Receive Date: 20221206
  Receipt Date: 20221206
  Transmission Date: 20230112
  Serious: Yes (Hospitalization, Other)
  Sender: FDA-Public Use
  Company Number: 2022A392412

PATIENT
  Age: 81 Year
  Sex: Male
  Weight: 86 kg

DRUGS (11)
  1. ROSUVASTATIN [Suspect]
     Active Substance: ROSUVASTATIN
     Indication: Product used for unknown indication
     Route: 048
  2. ABIRATERONE ACETATE [Suspect]
     Active Substance: ABIRATERONE ACETATE
     Indication: Prostate cancer metastatic
     Route: 065
  3. ACETAMINOPHEN [Concomitant]
     Active Substance: ACETAMINOPHEN
     Dosage: 1.0G EVERY 4 - 6 HOURS
  4. ASPIRIN [Concomitant]
     Active Substance: ASPIRIN
  5. INDAPAMIDE [Concomitant]
     Active Substance: INDAPAMIDE
  6. LEUPROLIDE ACETATE [Concomitant]
     Active Substance: LEUPROLIDE ACETATE
     Route: 058
  7. METFORMIN [Concomitant]
     Active Substance: METFORMIN HYDROCHLORIDE
  8. NITROGLYCERIN [Concomitant]
     Active Substance: NITROGLYCERIN
  9. VALSARTAN [Concomitant]
     Active Substance: VALSARTAN
  10. PREDNISONE [Concomitant]
     Active Substance: PREDNISONE
  11. METOPROLOL [Concomitant]
     Active Substance: METOPROLOL

REACTIONS (4)
  - Drug interaction [Unknown]
  - Acute kidney injury [Unknown]
  - Rhabdomyolysis [Unknown]
  - Therapeutic product effect incomplete [Unknown]
